FAERS Safety Report 4699206-6 (Version None)
Quarter: 2005Q2

REPORT INFORMATION
  Report Type: 
  Country: None (occurrence: None)
  Receive Date: 20050624
  Receipt Date: 20050530
  Transmission Date: 20051028
  Serious: Yes (Hospitalization, Disabling)
  Sender: FDA-Public Use
  Company Number: BE-MERCK-0505BEL00093

PATIENT
  Age: 84 Year
  Sex: Female

DRUGS (5)
  1. LOSARTAN POTASSIUM [Concomitant]
     Indication: HYPERTENSION
     Route: 048
     Dates: end: 20040101
  2. SIMVASTATIN [Suspect]
     Route: 048
  3. PERINDOPRIL ERBUMINE [Concomitant]
     Indication: HYPERTENSION
     Route: 048
  4. INDAPAMIDE [Concomitant]
     Indication: HYPERTENSION
     Route: 048
  5. NIFEDIPINE [Concomitant]
     Indication: HYPERTENSION
     Route: 048

REACTIONS (2)
  - CEREBROVASCULAR ACCIDENT [None]
  - RENAL ARTERY STENOSIS [None]
